FAERS Safety Report 7392703-4 (Version None)
Quarter: 2011Q2

REPORT INFORMATION
  Report Type: 
  Country: None (occurrence: None)
  Receive Date: 20110404
  Receipt Date: 20110329
  Transmission Date: 20111010
  Serious: Yes (Other)
  Sender: FDA-Public Use
  Company Number: CN-PFIZER INC-2011059640

PATIENT
  Age: 36 Year
  Sex: Female

DRUGS (3)
  1. SOLU-MEDROL [Suspect]
     Indication: PROPHYLAXIS
     Dosage: 1000 MG, SINGLE
     Dates: start: 20110301
  2. PRILOSEC [Concomitant]
  3. MANNITOL [Concomitant]

REACTIONS (2)
  - HAEMOPTYSIS [None]
  - LUNG DISORDER [None]
